FAERS Safety Report 8389569-2 (Version None)
Quarter: 2012Q2

REPORT INFORMATION
  Report Type: 
  Country: None (occurrence: None)
  Receive Date: 20120528
  Receipt Date: 20120524
  Transmission Date: 20120825
  Serious: Yes (Death, Hospitalization)
  Sender: FDA-Public Use
  Company Number: PHHY2012AR044871

PATIENT
  Sex: Male

DRUGS (2)
  1. EXELON [Suspect]
     Indication: NERVOUS SYSTEM DISORDER
     Dosage: 4.6 MG/24 HOURS (5 CM, ONE PATCH DAILY)
     Route: 062
  2. EXELON [Suspect]
     Dosage: 9.5 MG/24 HOURS (10 CM, A PATCH DAY)
     Route: 062

REACTIONS (5)
  - CARDIO-RESPIRATORY ARREST [None]
  - FOOD AVERSION [None]
  - DYSPHAGIA [None]
  - ISCHAEMIA [None]
  - GENERAL PHYSICAL HEALTH DETERIORATION [None]
